FAERS Safety Report 19096767 (Version 1)
Quarter: 2021Q2

REPORT INFORMATION
  Report Type: Spontaneous
  Country: US (occurrence: US)
  Receive Date: 20210405
  Receipt Date: 20210405
  Transmission Date: 20210717
  Serious: Yes (Death)
  Sender: FDA-Public Use
  Company Number: None

PATIENT
  Sex: Male
  Weight: 62.55 kg

DRUGS (13)
  1. OMEGA 3 [Concomitant]
     Active Substance: OMEGA-3 FATTY ACIDS
  2. GABAPENTIN. [Concomitant]
     Active Substance: GABAPENTIN
  3. ALFUZOSIN [Concomitant]
     Active Substance: ALFUZOSIN
  4. RESVERATROL [Concomitant]
     Active Substance: DIETARY SUPPLEMENT\RESVERATROL
  5. MAGNESIUM OXIDE. [Concomitant]
     Active Substance: MAGNESIUM OXIDE
  6. STIVARGA [Suspect]
     Active Substance: REGORAFENIB
     Indication: RECTAL CANCER
     Dates: start: 20210204
  7. CLINDAMYCIN. [Concomitant]
     Active Substance: CLINDAMYCIN
  8. NAPROXEN. [Concomitant]
     Active Substance: NAPROXEN
  9. OXYCODONE [Concomitant]
     Active Substance: OXYCODONE
  10. NATURE?THROID [Concomitant]
     Active Substance: THYROID, PORCINE
  11. FENTANYL. [Concomitant]
     Active Substance: FENTANYL
  12. VITAMIN D3 [Concomitant]
     Active Substance: CHOLECALCIFEROL
  13. COENZYME Q10 [Concomitant]
     Active Substance: DIETARY SUPPLEMENT\UBIDECARENONE

REACTIONS (1)
  - Death [None]
